FAERS Safety Report 7937225-4 (Version None)
Quarter: 2011Q4

REPORT INFORMATION
  Report Type: 
  Country: None (occurrence: None)
  Receive Date: 20111123
  Receipt Date: 20111116
  Transmission Date: 20120403
  Serious: Yes (Other)
  Sender: FDA-Public Use
  Company Number: JP-GLAXOSMITHKLINE-B0751647A

PATIENT
  Sex: Female

DRUGS (2)
  1. VENTOLIN [Suspect]
     Indication: ASTHMA
     Dosage: .5ML PER DAY
     Route: 055
     Dates: start: 20110926, end: 20110926
  2. BISOLVON [Concomitant]
     Indication: ASTHMA
     Dosage: 2ML PER DAY
     Route: 055

REACTIONS (8)
  - LARYNGEAL OEDEMA [None]
  - ANAPHYLACTIC REACTION [None]
  - PRURITUS GENERALISED [None]
  - EYE PRURITUS [None]
  - FACE OEDEMA [None]
  - URTICARIA [None]
  - HYPOAESTHESIA ORAL [None]
  - LIP SWELLING [None]
